FAERS Safety Report 10089407 (Version 3)
Quarter: 2014Q2

REPORT INFORMATION
  Report Type: Spontaneous
  Country: US (occurrence: US)
  Receive Date: 20140421
  Receipt Date: 20140527
  Transmission Date: 20141212
  Serious: Yes (Death, Hospitalization)
  Sender: FDA-Public Use
  Company Number: US-B.I. PHARMACEUTICALS,INC./RIDGEFIELD-2014-BI-17760BP

PATIENT
  Age: 85 Year
  Sex: Female

DRUGS (20)
  1. SPIRIVA [Suspect]
     Indication: CHRONIC OBSTRUCTIVE PULMONARY DISEASE
     Dosage: 18 MCG
     Route: 055
  2. TYLENOL [Concomitant]
     Indication: PAIN
     Dosage: DOSE PER APPLICATION TAKE 1-2 TABLETS; STRENGTH:300-30 MG
     Route: 048
  3. PROVENTIL HFA-VENTOLIN HFA [Concomitant]
     Indication: WHEEZING
     Dosage: 12 PUF
     Route: 055
  4. PROVENTIL HFA-VENTOLIN HFA [Concomitant]
     Indication: DYSPNOEA
  5. PROVENTIL HFA-VENTOLIN HFA [Concomitant]
     Indication: COUGH
  6. BLOOD SUGAR DIAGNOSTIC [Concomitant]
     Dosage: FORMULATION:STRIPS
     Route: 065
  7. BUDESONIDE-FORMOTEROL [Concomitant]
     Dosage: STRENGTH:80-4.5 MCG/ACTUATION
     Route: 055
  8. CALCIUM CARBONATE-VIT D3-MIN [Concomitant]
     Dosage: STRENGTH:600 MG CALCIUM 400 UNIT
     Route: 048
  9. CHOLECALCIFEROL [Concomitant]
     Dosage: STRENGTH: 2000 UNIT
     Route: 048
  10. CRANBERRY [Concomitant]
     Route: 048
  11. FOLVITE [Concomitant]
     Dosage: 1 MG
     Route: 048
  12. LASIX [Concomitant]
     Dosage: 40 MG
     Route: 048
  13. PLAQUENIL [Concomitant]
     Dosage: 200 MG
     Route: 048
  14. COZAAR [Concomitant]
     Dosage: 50 MG
     Route: 048
  15. METHOTREXATE [Concomitant]
     Dosage: 14.2857 MG
     Route: 048
  16. LOPRESSOR [Concomitant]
     Dosage: 50 MG
     Route: 048
  17. MULTIVITAMIN [Concomitant]
     Route: 048
  18. DELTASONE [Concomitant]
     Dosage: 5 MG
     Route: 048
  19. SPIRIVA [Concomitant]
     Dosage: 18 MCG
     Route: 055
  20. COUMADIN [Concomitant]
     Dosage: 5 MG
     Route: 048

REACTIONS (2)
  - Cardiac failure [Fatal]
  - Cardiac valve disease [Fatal]
